FAERS Safety Report 12297866 (Version 2)
Quarter: 2016Q2

REPORT INFORMATION
  Report Type: Spontaneous
  Country: CH (occurrence: CH)
  Receive Date: 20160422
  Receipt Date: 20160427
  Transmission Date: 20160815
  Serious: Yes (Hospitalization, Other)
  Sender: FDA-Public Use
  Company Number: CH-PFIZER INC-2016224343

PATIENT
  Age: 79 Year
  Sex: Male

DRUGS (22)
  1. INHIBACE MITE [Interacting]
     Active Substance: CILAZAPRIL ANHYDROUS
     Dosage: 2.5 MG, DAILY
     Route: 065
     Dates: end: 20160211
  2. PROLIA [Concomitant]
     Active Substance: DENOSUMAB
     Dosage: 60 MG, MONTHLY
     Route: 058
     Dates: start: 20160210
  3. HEPARIN [Concomitant]
     Active Substance: HEPARIN SODIUM
     Dosage: UNK
  4. VITAMIN D3 WILD [Concomitant]
     Dosage: UNK
  5. HYDROMORPHONI HYDROCHLORIDUM STREULI [Concomitant]
     Dosage: 1 MG/ML
  6. ALKERAN [Concomitant]
     Active Substance: MELPHALAN
     Dosage: UNK
     Dates: start: 20160212, end: 20160304
  7. ZOFRAN [Concomitant]
     Active Substance: ONDANSETRON HYDROCHLORIDE
     Dosage: UNK
  8. PANTOZOL [Suspect]
     Active Substance: PANTOPRAZOLE SODIUM
     Indication: BACK PAIN
     Dosage: 40 MG, DAILY
     Dates: start: 201601, end: 20160215
  9. MIACALCIC [Concomitant]
     Active Substance: CALCITONIN SALMON
     Dosage: 300 IU, 2X/DAY
     Dates: start: 20160210, end: 20160223
  10. AMLODIPINE [Concomitant]
     Active Substance: AMLODIPINE BESYLATE
     Dosage: UNK
  11. PREDNISON [Concomitant]
     Active Substance: PREDNISONE
     Dosage: 50 MG, DAILY
     Dates: start: 20160215, end: 20160219
  12. ZANTAC [Concomitant]
     Active Substance: RANITIDINE HYDROCHLORIDE
     Dosage: 150 MG, DAILY
     Dates: start: 20160216, end: 20160229
  13. VELCADE [Concomitant]
     Active Substance: BORTEZOMIB
     Dosage: UNK
     Dates: start: 20160212, end: 20160304
  14. ZANTAC [Concomitant]
     Active Substance: RANITIDINE HYDROCHLORIDE
     Dosage: UNK
     Dates: start: 20160316
  15. ROCEPHIN [Concomitant]
     Active Substance: CEFTRIAXONE SODIUM
     Indication: URINARY TRACT INFECTION
     Dosage: 2 G, UNK
     Route: 042
     Dates: start: 20160226, end: 20160304
  16. MOTILIUM [Concomitant]
     Active Substance: DOMPERIDONE
     Dosage: UNK
  17. BRUFEN /00109201/ [Interacting]
     Active Substance: IBUPROFEN
     Indication: BACK PAIN
     Dosage: 600 MG, 3X/DAY
     Dates: start: 201601, end: 20160210
  18. FRAGMIN [Concomitant]
     Active Substance: DALTEPARIN SODIUM
     Dosage: 2500
     Route: 058
  19. PHYSIOTENS [Concomitant]
     Active Substance: MOXONIDINE
     Dosage: 0.2 MG, UNK
  20. REDORMIN /01229902/ [Concomitant]
     Dosage: UNK
  21. INHIBACE MITE [Interacting]
     Active Substance: CILAZAPRIL ANHYDROUS
     Dosage: 2.5 MG
     Route: 065
     Dates: start: 20160216, end: 20160229
  22. DAFALGAN [Concomitant]
     Active Substance: ACETAMINOPHEN
     Dosage: UNK

REACTIONS (2)
  - Tubulointerstitial nephritis [Not Recovered/Not Resolved]
  - Potentiating drug interaction [Not Recovered/Not Resolved]

NARRATIVE: CASE EVENT DATE: 20160209
